FAERS Safety Report 21098923 (Version 1)
Quarter: 2022Q3

REPORT INFORMATION
  Report Type: Spontaneous
  Country: US (occurrence: US)
  Receive Date: 20220719
  Receipt Date: 20220719
  Transmission Date: 20221027
  Serious: Yes (Life-Threatening, Hospitalization)
  Sender: FDA-Public Use
  Company Number: US-MYLANLABS-2022M1078248

PATIENT
  Age: 61 Year
  Sex: Male

DRUGS (12)
  1. BACLOFEN [Suspect]
     Active Substance: BACLOFEN
     Indication: Back pain
     Dosage: UNK
     Route: 037
  2. BACLOFEN [Suspect]
     Active Substance: BACLOFEN
     Indication: Ankylosing spondylitis
     Dosage: UNK, DOSE INCREASED
     Route: 037
  3. ZICONOTIDE [Suspect]
     Active Substance: ZICONOTIDE
     Indication: Back pain
     Dosage: UNK
     Route: 037
  4. ZICONOTIDE [Suspect]
     Active Substance: ZICONOTIDE
     Dosage: UNK, DOSE DECREASED
     Route: 037
  5. FENTANYL [Concomitant]
     Active Substance: FENTANYL
     Indication: Back pain
     Dosage: UNK
     Route: 037
  6. FENTANYL [Concomitant]
     Active Substance: FENTANYL
     Dosage: UNK, DOSE DECREASED
     Route: 037
  7. BACLOFEN [Concomitant]
     Active Substance: BACLOFEN
     Indication: Ankylosing spondylitis
     Dosage: 10 MILLIGRAM, TID
     Route: 048
  8. BACLOFEN [Concomitant]
     Active Substance: BACLOFEN
     Indication: Back pain
     Dosage: 15 MILLIGRAM, TID
     Route: 048
  9. MIRTAZAPINE [Concomitant]
     Active Substance: MIRTAZAPINE
     Indication: Product used for unknown indication
     Dosage: UNK
     Route: 065
  10. DULOXETINE [Concomitant]
     Active Substance: DULOXETINE
     Indication: Product used for unknown indication
     Dosage: UNK
     Route: 065
  11. AMITRIPTYLINE [Concomitant]
     Active Substance: AMITRIPTYLINE
     Indication: Back pain
     Dosage: UNK
     Route: 065
  12. PREGABALIN [Concomitant]
     Active Substance: PREGABALIN
     Indication: Back pain
     Dosage: UNK
     Route: 065

REACTIONS (8)
  - Agitation [Recovered/Resolved]
  - Withdrawal syndrome [Recovered/Resolved]
  - Confusional state [Recovered/Resolved]
  - Hallucination, visual [Recovered/Resolved]
  - Dysarthria [Recovered/Resolved]
  - Pressure of speech [Recovered/Resolved]
  - Mydriasis [Recovered/Resolved]
  - Tremor [Recovered/Resolved]
